FAERS Safety Report 6287655-4 (Version None)
Quarter: 2009Q3

REPORT INFORMATION
  Report Type: 
  Country: None (occurrence: None)
  Receive Date: 20090727
  Receipt Date: 20090727
  Transmission Date: 20100115
  Serious: Yes (Hospitalization)
  Sender: FDA-Public Use
  Company Number: None

PATIENT
  Sex: Male
  Weight: 65 kg

DRUGS (3)
  1. OXALIPLATIN [Suspect]
     Indication: RECTAL CANCER
     Dosage: 85 MG/M2 Q DAY 1 AND DAY 15, IV
     Route: 042
     Dates: start: 20090417, end: 20090612
  2. CAPECITABINE [Suspect]
     Indication: RECTAL CANCER
     Dosage: 750 MG/M2, DAYS 1-28, PO
     Route: 048
     Dates: start: 20090417, end: 20090612
  3. BEVACIZUMAB [Suspect]
     Dosage: 5 MG/KG, Q DAY 1 AND DAY 15, IV
     Route: 041
     Dates: start: 20090417, end: 20090612

REACTIONS (9)
  - APHASIA [None]
  - ASTHENIA [None]
  - CEREBROVASCULAR DISORDER [None]
  - DEHYDRATION [None]
  - MUSCULAR WEAKNESS [None]
  - NAUSEA [None]
  - PAIN [None]
  - TACHYCARDIA [None]
  - VOMITING [None]
